FAERS Safety Report 4380258-8 (Version None)
Quarter: 2004Q2

REPORT INFORMATION
  Report Type: 
  Country: None (occurrence: None)
  Receive Date: 20040616
  Receipt Date: 20040616
  Transmission Date: 20050107
  Serious: Yes (Life-Threatening, Hospitalization)
  Sender: FDA-Public Use
  Company Number: None

PATIENT
  Age: 80 Year
  Sex: Male
  Weight: 122.2 kg

DRUGS (18)
  1. GATIFLOXACIN [Suspect]
     Indication: PNEUMONIA
     Dosage: 200 MG IV Q 24 H
     Route: 042
     Dates: start: 20040604
  2. METOPROLOL SUCCINATE [Concomitant]
  3. CYCLOBENZAPRINE HCL [Concomitant]
  4. WARFARIN SODIUM [Concomitant]
  5. VENLAFAXINE [Concomitant]
  6. MORPHINE SULFATE [Concomitant]
  7. SENNA [Concomitant]
  8. POTASSIUM CHLORIDE [Concomitant]
  9. OMEPRAZOLE [Concomitant]
  10. LISINOPRIL [Concomitant]
  11. GLYBURIDE [Concomitant]
  12. FUROSEMIDE [Concomitant]
  13. FOLIC ACID [Concomitant]
  14. DOCUSATE [Concomitant]
  15. DIGOXIN [Concomitant]
  16. CITALOPRAM [Concomitant]
  17. ATORVASTATIN CALCIUM [Concomitant]
  18. CEFTRIAXONE [Concomitant]

REACTIONS (1)
  - HYPOGLYCAEMIA [None]
